FAERS Safety Report 8295553-X (Version None)
Quarter: 2012Q2

REPORT INFORMATION
  Report Type: 
  Country: None (occurrence: None)
  Receive Date: 20120418
  Receipt Date: 20120416
  Transmission Date: 20120825
  Serious: Yes (Death, Hospitalization, Other)
  Sender: FDA-Public Use
  Company Number: PHHY2012BR014290

PATIENT
  Sex: Female

DRUGS (5)
  1. ATENOLOL AND CHLORTHALIDONE [Concomitant]
     Indication: CEREBROVASCULAR DISORDER
     Dosage: 75 MG, UNK
  2. SPIRONOLACTONE [Concomitant]
     Indication: CARDIOVASCULAR DISORDER
     Dosage: 25 MG, UNK
  3. DIGOXIN [Concomitant]
     Indication: CARDIOMEGALY
     Dosage: 0.125 MG, UNK
  4. DIOVAN [Suspect]
     Indication: HYPERTENSION
     Dosage: 1 TABLET (160 MG) A DAY
     Route: 048
  5. METOPROLOL SUCCINATE [Concomitant]
     Indication: CARDIOVASCULAR DISORDER
     Dosage: UNK UKN, UNK

REACTIONS (5)
  - MYOCARDIAL INFARCTION [None]
  - CARDIAC ARREST [None]
  - RESPIRATORY FAILURE [None]
  - RENAL DISORDER [None]
  - CEREBROVASCULAR ACCIDENT [None]
